FAERS Safety Report 6081150-3 (Version None)
Quarter: 2009Q1

REPORT INFORMATION
  Report Type: 
  Country: None (occurrence: None)
  Receive Date: 20090217
  Receipt Date: 20090121
  Transmission Date: 20090719
  Serious: Yes (Hospitalization)
  Sender: FDA-Public Use
  Company Number: AU-GENENTECH-276233

PATIENT
  Sex: Female

DRUGS (11)
  1. BLINDED BEVACIZUMAB [Suspect]
     Indication: BREAST CANCER METASTATIC
     Dosage: 520 MG, Q3W
     Route: 042
     Dates: start: 20070303
  2. DOCETAXEL [Suspect]
     Indication: BREAST CANCER METASTATIC
     Dosage: 520 MG, Q3W
     Route: 042
     Dates: start: 20070303
  3. BLINDED PLACEBO [Suspect]
     Indication: BREAST CANCER METASTATIC
     Dosage: 520 MG, Q3W
     Route: 042
     Dates: start: 20070303
  4. BEVACIZUMAB [Suspect]
     Indication: BREAST CANCER METASTATIC
     Dosage: 1100 MG, Q3W
     Route: 042
     Dates: start: 20080724
  5. DOCETAXEL [Suspect]
     Indication: BREAST CANCER METASTATIC
     Dosage: 130 MG, Q3W
     Route: 042
     Dates: start: 20070303
  6. XELODA [Concomitant]
     Indication: DRUG USE FOR UNKNOWN INDICATION
     Dosage: UNK
     Dates: start: 20080725
  7. CELEBREX [Concomitant]
     Indication: DRUG USE FOR UNKNOWN INDICATION
     Dosage: UNK
  8. GLUCOSAMINE [Concomitant]
     Indication: DRUG USE FOR UNKNOWN INDICATION
  9. LIPITOR [Concomitant]
     Indication: DRUG USE FOR UNKNOWN INDICATION
     Dosage: UNK
  10. DIABEX [Concomitant]
     Indication: DRUG USE FOR UNKNOWN INDICATION
     Dosage: UNK
  11. DILANTIN [Concomitant]
     Indication: DRUG USE FOR UNKNOWN INDICATION

REACTIONS (1)
  - CRANIAL NERVE PALSIES MULTIPLE [None]
